FAERS Safety Report 8369817-5 (Version None)
Quarter: 2012Q2

REPORT INFORMATION
  Report Type: 
  Country: None (occurrence: None)
  Receive Date: 20120518
  Receipt Date: 20120510
  Transmission Date: 20120825
  Serious: Yes (Hospitalization, Disabling, Other)
  Sender: FDA-Public Use
  Company Number: US-ABBOTT-12P-163-0934493-00

PATIENT
  Sex: Male

DRUGS (1)
  1. HUMIRA [Suspect]
     Indication: RHEUMATOID ARTHRITIS
     Dates: start: 20070701, end: 20100518

REACTIONS (32)
  - UNEVALUABLE EVENT [None]
  - MYOCARDIAL INFARCTION [None]
  - MULTIPLE MYELOMA [None]
  - BACK PAIN [None]
  - HEADACHE [None]
  - WHITE BLOOD CELL COUNT INCREASED [None]
  - HAEMORRHAGE [None]
  - ECONOMIC PROBLEM [None]
  - BACTERIAL INFECTION [None]
  - DEPENDENCE ON RESPIRATOR [None]
  - RHABDOMYOLYSIS [None]
  - ASTHENIA [None]
  - FATIGUE [None]
  - PAIN [None]
  - PAIN IN EXTREMITY [None]
  - PYREXIA [None]
  - NECROTISING FASCIITIS [None]
  - HYPERCALCAEMIA [None]
  - INFECTION [None]
  - RENAL FAILURE [None]
  - ARTHRALGIA [None]
  - RESPIRATORY FAILURE [None]
  - MULTIPLE INJURIES [None]
  - DISABILITY [None]
  - OSTEONECROSIS [None]
  - DRUG INEFFECTIVE [None]
  - MEDICAL INDUCTION OF COMA [None]
  - MUSCULOSKELETAL PAIN [None]
  - TENDERNESS [None]
  - STAPHYLOCOCCAL INFECTION [None]
  - HAEMORRHAGIC ANAEMIA [None]
  - IMMUNE SYSTEM DISORDER [None]
